FAERS Safety Report 9144550 (Version 2)
Quarter: 2013Q1

REPORT INFORMATION
  Report Type: Report from Study
  Country: DK (occurrence: DE)
  Receive Date: 20130306
  Receipt Date: 20130326
  Transmission Date: 20140127
  Serious: Yes (Hospitalization, Other)
  Sender: FDA-Public Use
  Company Number: DE-FRI-1000043119

PATIENT
  Age: 85 Year
  Sex: Female

DRUGS (5)
  1. CITALOPRAM [Suspect]
     Dosage: 20 MG
     Route: 048
     Dates: end: 20120718
  2. VALSARTAN [Interacting]
     Dosage: 160 MG
     Route: 048
  3. HCT HEXAL [Interacting]
     Dosage: 25 MG
     Route: 048
  4. BISOPROLOL [Concomitant]
     Dosage: 5 MG
     Route: 048
  5. CORIFEO [Concomitant]
     Dosage: 10 MG
     Route: 048

REACTIONS (3)
  - Hyponatraemia [Recovered/Resolved]
  - Delirium [Recovered/Resolved]
  - Potentiating drug interaction [Recovered/Resolved]
